FAERS Safety Report 6553801-8 (Version None)
Quarter: 2010Q1

REPORT INFORMATION
  Report Type: 
  Country: None (occurrence: None)
  Receive Date: 20100125
  Receipt Date: 20100125
  Transmission Date: 20100710
  Serious: Yes (Other)
  Sender: FDA-Public Use
  Company Number: None

PATIENT
  Age: 54 Year
  Sex: Female
  Weight: 65.7716 kg

DRUGS (2)
  1. GEODON [Suspect]
     Indication: PSYCHOTIC DISORDER
     Dosage: 40 MG ONCE AT DINNER 60 MG ONCE AT DINNER
     Dates: start: 20081201, end: 20091210
  2. LEXAPRO [Concomitant]

REACTIONS (1)
  - EYE DISORDER [None]
